FAERS Safety Report 7305186-7 (Version None)
Quarter: 2011Q1

REPORT INFORMATION
  Report Type: 
  Country: None (occurrence: None)
  Receive Date: 20110222
  Receipt Date: 20110217
  Transmission Date: 20110831
  Serious: Yes (Hospitalization, Other)
  Sender: FDA-Public Use
  Company Number: US-PFIZER INC-2010161805

PATIENT
  Sex: Male

DRUGS (5)
  1. CHANTIX [Suspect]
     Indication: SMOKING CESSATION THERAPY
     Dosage: 1 MG, UNK
     Dates: start: 20070701, end: 20090701
  2. VALSARTAN [Concomitant]
     Indication: HYPERTENSION
     Dosage: UNK
     Dates: end: 20090101
  3. CHANTIX [Suspect]
     Dosage: UNK
     Dates: start: 20080301
  4. METOPROLOL [Concomitant]
     Indication: HYPERTENSION
     Dosage: UNK
     Dates: end: 20090101
  5. COMBIVENT [Concomitant]
     Indication: CHRONIC OBSTRUCTIVE PULMONARY DISEASE
     Dosage: UNK
     Dates: end: 20090101

REACTIONS (11)
  - ANXIETY [None]
  - MENTAL DISORDER [None]
  - ROAD TRAFFIC ACCIDENT [None]
  - DEPRESSION [None]
  - IMPAIRED DRIVING ABILITY [None]
  - RESPIRATORY DISORDER [None]
  - NERVE INJURY [None]
  - ABNORMAL BEHAVIOUR [None]
  - AGGRESSION [None]
  - EMOTIONAL DISTRESS [None]
  - LIMB INJURY [None]
